FAERS Safety Report 21751483 (Version 2)
Quarter: 2023Q1

REPORT INFORMATION
  Report Type: Spontaneous
  Country: US (occurrence: US)
  Receive Date: 20221220
  Receipt Date: 20230109
  Transmission Date: 20230418
  Serious: No
  Sender: FDA-Public Use
  Company Number: US-SA-SAC20221216001571

PATIENT
  Age: 52 Year
  Sex: Male

DRUGS (2)
  1. DUPIXENT [Suspect]
     Active Substance: DUPILUMAB
     Indication: Eosinophilic oesophagitis
     Dosage: UNK UNK, QW
     Route: 058
     Dates: start: 20221101
  2. PILOSED [Concomitant]
     Dosage: UNK

REACTIONS (3)
  - Injection site swelling [Not Recovered/Not Resolved]
  - Injection site erythema [Recovered/Resolved]
  - Dysphagia [Not Recovered/Not Resolved]

NARRATIVE: CASE EVENT DATE: 20221101
